FAERS Safety Report 4375641-0 (Version None)
Quarter: 2004Q2

REPORT INFORMATION
  Report Type: 
  Country: None (occurrence: None)
  Receive Date: 20040607
  Receipt Date: 20040526
  Transmission Date: 20050107
  Serious: No
  Sender: FDA-Public Use
  Company Number: 04H-163-0262240-00

PATIENT
  Sex: 0

DRUGS (13)
  1. DOPAMINE HCL [Suspect]
  2. FUROSEMIDE [Suspect]
  3. ENALAPRIL MALEATE [Suspect]
  4. CHLORTHIAZIDE TAB [Concomitant]
  5. ETACRYNIC ACID [Concomitant]
  6. CAPTOPRIL [Concomitant]
  7. DIGOXIN [Concomitant]
  8. DOBUTAMINE [Concomitant]
  9. SODIUM NITROPRUSSIDE [Concomitant]
  10. CEFAZOLIN [Concomitant]
  11. METRONIDAZOLE [Concomitant]
  12. GENTAMICIN [Concomitant]
  13. BACTRIM [Concomitant]

REACTIONS (3)
  - EOSINOPHILIA [None]
  - EOSINOPHILIC MYOCARDITIS [None]
  - HEART TRANSPLANT [None]
